FAERS Safety Report 7827313-5 (Version None)
Quarter: 2011Q4

REPORT INFORMATION
  Report Type: 
  Country: None (occurrence: None)
  Receive Date: 20111020
  Receipt Date: 20111013
  Transmission Date: 20120403
  Serious: Yes (Other)
  Sender: FDA-Public Use
  Company Number: DE-PFIZER INC-2011244576

PATIENT
  Age: 78 Year
  Sex: Male
  Weight: 82.3 kg

DRUGS (1)
  1. TOVIAZ [Suspect]
     Dosage: 1 TABLET DAILY
     Route: 048

REACTIONS (6)
  - TACHYCARDIA [None]
  - DRY MOUTH [None]
  - DIZZINESS [None]
  - BLOOD PRESSURE INCREASED [None]
  - SPEECH DISORDER [None]
  - ABDOMINAL PAIN [None]
